FAERS Safety Report 14761778 (Version 1)
Quarter: 2018Q2

REPORT INFORMATION
  Report Type: Spontaneous
  Country: US (occurrence: US)
  Receive Date: 20180416
  Receipt Date: 20180416
  Transmission Date: 20180711
  Serious: No
  Sender: FDA-Public Use
  Company Number: US-BION-006455

PATIENT
  Age: 67 Year
  Sex: Female

DRUGS (4)
  1. CENTRUM SILVER 50 PLUS [Concomitant]
  2. ALEVE [Suspect]
     Active Substance: NAPROXEN SODIUM
     Indication: PAIN
     Dosage: DOSAGE AS USED: 1 AS NEEDED
     Route: 048
  3. BIOFLEX [Concomitant]
     Active Substance: GLUCOSAMINE SULFATE
  4. LISINOPRIL. [Concomitant]
     Active Substance: LISINOPRIL

REACTIONS (2)
  - Abdominal pain upper [Recovered/Resolved]
  - Product quality issue [Unknown]
